FAERS Safety Report 6935885-8 (Version None)
Quarter: 2010Q3

REPORT INFORMATION
  Report Type: 
  Country: None (occurrence: None)
  Receive Date: 20100816
  Receipt Date: 20090715
  Transmission Date: 20110219
  Serious: No
  Sender: FDA-Public Use
  Company Number: 2009-00396

PATIENT
  Age: 72 Year
  Sex: Female
  Weight: 81.6475 kg

DRUGS (5)
  1. ZICAM COLD REMEDY GEL SWABS [Suspect]
     Dosage: AS DIRECTED X 3 DOSES
  2. LEVOTHYROXINE SODIUM [Concomitant]
  3. NEXIUM [Concomitant]
  4. ZETIA [Concomitant]
  5. LEVSIN [Concomitant]

REACTIONS (1)
  - ANOSMIA [None]
